FAERS Safety Report 9443514 (Version 1)
Quarter: 2013Q3

REPORT INFORMATION
  Report Type: Spontaneous
  Country: US (occurrence: US)
  Receive Date: 20130806
  Receipt Date: 20130806
  Transmission Date: 20140515
  Serious: Yes (Other)
  Sender: FDA-Public Use
  Company Number: US-ALEXION PHARMACEUTICALS INC.-A201301790

PATIENT
  Sex: Male

DRUGS (3)
  1. SOLIRIS 300MG [Suspect]
     Indication: HAEMOLYTIC URAEMIC SYNDROME
     Dosage: UNK, EVERY 11-12 DAYS
     Route: 042
  2. SOLIRIS 300MG [Suspect]
     Indication: THROMBOTIC THROMBOCYTOPENIC PURPURA
  3. SOLIRIS 300MG [Suspect]
     Indication: OFF LABEL USE

REACTIONS (4)
  - Thrombocytopenia [Unknown]
  - Blood lactate dehydrogenase increased [Unknown]
  - Blood creatinine increased [Unknown]
  - Inappropriate schedule of drug administration [Unknown]
